FAERS Safety Report 5204245-2 (Version None)
Quarter: 2007Q1

REPORT INFORMATION
  Report Type: 
  Country: None (occurrence: None)
  Receive Date: 20070110
  Receipt Date: 20060119
  Transmission Date: 20070707
  Serious: No
  Sender: FDA-Public Use
  Company Number: US-BRISTOL-MYERS SQUIBB COMPANY-13253984

PATIENT
  Age: 40 Year
  Sex: Female
  Weight: 68 kg

DRUGS (5)
  1. ABILIFY [Suspect]
     Indication: DEPRESSION
     Dosage: REDUCED TO 5 MG DAILY AFTER 3 MOS. DUE TO THE EVENT, DISCONTINUED AFTER 6 MOS.
     Route: 048
  2. ABILIFY [Suspect]
     Indication: PSYCHIATRIC SYMPTOM
     Dosage: REDUCED TO 5 MG DAILY AFTER 3 MOS. DUE TO THE EVENT, DISCONTINUED AFTER 6 MOS.
     Route: 048
  3. PAXIL [Concomitant]
  4. SERZONE [Concomitant]
  5. LAMICTAL [Concomitant]

REACTIONS (1)
  - VISION BLURRED [None]
